FAERS Safety Report 20463186 (Version 1)
Quarter: 2022Q1

REPORT INFORMATION
  Report Type: Spontaneous
  Country: US (occurrence: US)
  Receive Date: 20220211
  Receipt Date: 20220211
  Transmission Date: 20220423
  Serious: Yes (Hospitalization)
  Sender: FDA-Public Use
  Company Number: US-FRESENIUS KABI-FK202201458

PATIENT

DRUGS (2)
  1. OXACILLIN SODIUM [Suspect]
     Active Substance: OXACILLIN SODIUM
     Indication: Product used for unknown indication
     Route: 065
     Dates: start: 20211217
  2. OXACILLIN [Suspect]
     Active Substance: OXACILLIN SODIUM
     Indication: Product used for unknown indication
     Route: 065
     Dates: start: 20211206

REACTIONS (1)
  - Drug reaction with eosinophilia and systemic symptoms [Unknown]

NARRATIVE: CASE EVENT DATE: 20211217
